FAERS Safety Report 8168137-1 (Version None)
Quarter: 2012Q1

REPORT INFORMATION
  Report Type: 
  Country: None (occurrence: None)
  Receive Date: 20120227
  Receipt Date: 20120221
  Transmission Date: 20120608
  Serious: Yes (Other)
  Sender: FDA-Public Use
  Company Number: PHEH2011US009109

PATIENT
  Sex: Male
  Weight: 76.19 kg

DRUGS (6)
  1. WELLBUTRIN XL [Concomitant]
  2. NAPROSYN [Concomitant]
  3. GILENYA [Suspect]
     Indication: MULTIPLE SCLEROSIS
     Dosage: 0.5 MG, QD
     Route: 048
     Dates: start: 20110921, end: 20111110
  4. AMBIEN [Concomitant]
  5. NICOTINE [Concomitant]
     Dosage: UNK UKN, UNK
  6. TRAZODONE HCL [Concomitant]
     Dosage: 150 MG, UNK

REACTIONS (3)
  - ELECTROCARDIOGRAM ABNORMAL [None]
  - HYPOKINESIA [None]
  - ISCHAEMIA [None]
